FAERS Safety Report 7437470-0 (Version None)
Quarter: 2011Q2

REPORT INFORMATION
  Report Type: 
  Country: None (occurrence: None)
  Receive Date: 20110426
  Receipt Date: 20110405
  Transmission Date: 20111010
  Serious: Yes (Hospitalization)
  Sender: FDA-Public Use
  Company Number: FR-PFIZER INC-2005167546

PATIENT
  Age: 89 Year
  Sex: Female
  Weight: 60 kg

DRUGS (9)
  1. SINTROM [Suspect]
     Indication: CARDIAC FIBRILLATION
     Dosage: 1 MG, 1X/DAY
     Route: 048
  2. TRIATEC [Suspect]
     Indication: CARDIAC DISORDER
     Route: 048
  3. LASIX [Suspect]
     Indication: CARDIAC DISORDER
     Route: 048
     Dates: end: 20041215
  4. SINTROM [Suspect]
     Indication: ATRIAL FLUTTER
  5. DEROXAT [Suspect]
     Indication: DYSTHYMIC DISORDER
     Route: 048
     Dates: end: 20041212
  6. AMLODIPINE BESYLATE [Suspect]
     Route: 048
  7. DIFFU K [Concomitant]
     Dosage: 3/DAY
     Route: 048
  8. CORDARONE [Suspect]
     Route: 048
     Dates: end: 20041225
  9. VASTAREL [Concomitant]
     Dosage: 2/DAY
     Route: 048

REACTIONS (2)
  - PULMONARY FIBROSIS [None]
  - HYPONATRAEMIA [None]
